FAERS Safety Report 9263904 (Version 3)
Quarter: 2013Q2

REPORT INFORMATION
  Report Type: Spontaneous
  Country: ES (occurrence: ES)
  Receive Date: 20130430
  Receipt Date: 20130605
  Transmission Date: 20140414
  Serious: Yes (Other)
  Sender: FDA-Public Use
  Company Number: ES-PFIZER INC-2013118966

PATIENT
  Age: 59 Year
  Sex: Male

DRUGS (4)
  1. CAVERJECT [Suspect]
     Indication: ERECTILE DYSFUNCTION
     Dosage: UNK
     Dates: start: 201212
  2. ATENOLOL [Concomitant]
     Dosage: UNK
  3. ATORVASTATIN [Concomitant]
     Dosage: UNK
  4. ADIRO [Concomitant]
     Indication: BLOOD PRESSURE
     Dosage: UNK

REACTIONS (3)
  - Penile pain [Not Recovered/Not Resolved]
  - Balanitis [Not Recovered/Not Resolved]
  - Drug ineffective [Not Recovered/Not Resolved]
